FAERS Safety Report 6263501-X (Version None)
Quarter: 2009Q3

REPORT INFORMATION
  Report Type: 
  Country: None (occurrence: None)
  Receive Date: 20090710
  Receipt Date: 20090511
  Transmission Date: 20100115
  Serious: No
  Sender: FDA-Public Use
  Company Number: A0774916A

PATIENT
  Age: 60 Year
  Sex: Female
  Weight: 51.4 kg

DRUGS (2)
  1. TYKERB [Suspect]
     Indication: DRUG USE FOR UNKNOWN INDICATION
     Dosage: 5TAB AT NIGHT
     Route: 048
     Dates: start: 20090314
  2. IXEMPRA KIT [Suspect]
     Route: 042

REACTIONS (8)
  - DIARRHOEA [None]
  - DIZZINESS [None]
  - FATIGUE [None]
  - HYPOAESTHESIA [None]
  - NAUSEA [None]
  - PARAESTHESIA [None]
  - RASH [None]
  - VOMITING [None]
